FAERS Safety Report 8614370-1 (Version None)
Quarter: 2012Q3

REPORT INFORMATION
  Report Type: 
  Country: None (occurrence: None)
  Receive Date: 20120823
  Receipt Date: 20120813
  Transmission Date: 20120928
  Serious: Yes (Hospitalization, Other)
  Sender: FDA-Public Use
  Company Number: FR-009507513-1208FRA006653

PATIENT

DRUGS (5)
  1. DEPAMIDE [Concomitant]
     Indication: MENTAL DISORDER
     Dosage: UNK
  2. VICTRELIS [Suspect]
     Indication: HEPATITIS C
     Dosage: UNK
     Dates: start: 20120501
  3. COPEGUS [Concomitant]
     Indication: HEPATITIS C
     Dosage: UNK
     Dates: start: 20120401
  4. PEGASYS [Concomitant]
     Indication: HEPATITIS C
     Dosage: UNK
     Dates: start: 20120401
  5. AMITRIPTYLINE HYDROCHLORIDE [Concomitant]
     Indication: MENTAL DISORDER

REACTIONS (1)
  - OEDEMATOUS PANCREATITIS [None]
